FAERS Safety Report 4293983-4 (Version None)
Quarter: 2004Q1

REPORT INFORMATION
  Report Type: 
  Country: None (occurrence: None)
  Receive Date: 20040212
  Receipt Date: 20040203
  Transmission Date: 20041129
  Serious: Yes (Other)
  Sender: FDA-Public Use
  Company Number: WAES 0402ITA00010

PATIENT
  Age: 38 Year
  Sex: Male

DRUGS (7)
  1. DIDANOSINE [Concomitant]
     Indication: HIV INFECTION
     Dates: start: 20020301
  2. SUSTIVA [Suspect]
     Dates: start: 20000301
  3. CRIXIVAN [Suspect]
     Indication: HIV INFECTION
     Route: 048
     Dates: start: 19961001, end: 20010701
  4. LAMIVUDINE [Suspect]
     Indication: HIV INFECTION
     Dates: start: 19961001, end: 20000301
  5. LAMIVUDINE [Suspect]
     Dates: start: 20020301
  6. LOPINAVIR AND RITONAVIR [Suspect]
     Indication: HIV INFECTION
     Dates: start: 20010101, end: 20020101
  7. STAVUDINE [Suspect]
     Indication: HIV INFECTION
     Dates: start: 19961001

REACTIONS (2)
  - ASEPTIC NECROSIS BONE [None]
  - NEPHROLITHIASIS [None]
